FAERS Safety Report 18364225 (Version 1)
Quarter: 2020Q4

REPORT INFORMATION
  Report Type: Spontaneous
  Country: GB (occurrence: GB)
  Receive Date: 20201009
  Receipt Date: 20201009
  Transmission Date: 20210114
  Serious: Yes (Hospitalization)
  Sender: FDA-Public Use
  Company Number: GB-ACCORD-204552

PATIENT
  Age: 47 Year
  Sex: Female

DRUGS (14)
  1. SIMVASTATIN. [Concomitant]
     Active Substance: SIMVASTATIN
     Dosage: NIGHT
  2. FUROSEMIDE. [Suspect]
     Active Substance: FUROSEMIDE
     Indication: PRODUCT USED FOR UNKNOWN INDICATION
     Dosage: MORNING
     Route: 048
  3. ALPHOSYL 2 IN 1 [Concomitant]
  4. QUININE [Concomitant]
     Active Substance: QUININE
     Dosage: NIGHT
  5. CARBAMAZEPINE. [Suspect]
     Active Substance: CARBAMAZEPINE
     Indication: SEIZURE
     Route: 048
  6. CANDESARTAN. [Concomitant]
     Active Substance: CANDESARTAN
  7. LANSOPRAZOLE. [Suspect]
     Active Substance: LANSOPRAZOLE
     Indication: PRODUCT USED FOR UNKNOWN INDICATION
     Dosage: MORNING
     Route: 048
  8. UNIPHYLLIN CONTINUS [Concomitant]
     Active Substance: THEOPHYLLINE ANHYDROUS
  9. SOLIFENACIN/SOLIFENACIN SUCCINATE [Concomitant]
     Active Substance: SOLIFENACIN SUCCINATE
  10. CARBOCISTEINE/CARBOCISTEINE LYSINE/CARBOCISTEINE SODIUM [Concomitant]
     Active Substance: CARBOCYSTEINE
  11. VENTOLIN [Concomitant]
     Active Substance: ALBUTEROL SULFATE
     Dosage: FOUR TIMES DAILY AS NECESSARY
  12. AMLODIPINE [Concomitant]
     Active Substance: AMLODIPINE BESYLATE
  13. ADCAL-D3 [Concomitant]
     Active Substance: CALCIUM CARBONATE\CHOLECALCIFEROL
  14. TRIMBOW [Concomitant]
     Active Substance: BECLOMETHASONE DIPROPIONATE\FORMOTEROL FUMARATE\GLYCOPYRROLATE
     Dosage: 87/5/9MICROGRAM/DOSE
     Route: 055

REACTIONS (3)
  - Headache [Unknown]
  - Seizure [Unknown]
  - Hyponatraemia [Recovering/Resolving]
